FAERS Safety Report 13135639 (Version 6)
Quarter: 2017Q3

REPORT INFORMATION
  Report Type: Report from Study
  Country: None (occurrence: US)
  Receive Date: 20170120
  Receipt Date: 20170713
  Transmission Date: 20171127
  Serious: Yes (Hospitalization)
  Sender: FDA-Public Use
  Company Number: US-ABBVIE-17K-163-1839996-00

PATIENT
  Age: 58 Year
  Sex: Female

DRUGS (1)
  1. HUMIRA [Suspect]
     Active Substance: ADALIMUMAB
     Indication: CROHN^S DISEASE
     Route: 058
     Dates: start: 2012, end: 201701

REACTIONS (13)
  - Respiratory disorder [Unknown]
  - Memory impairment [Unknown]
  - Panic attack [Unknown]
  - Chronic obstructive pulmonary disease [Unknown]
  - Procedural complication [Unknown]
  - Oropharyngeal discomfort [Unknown]
  - Crohn^s disease [Unknown]
  - Oxygen saturation decreased [Recovering/Resolving]
  - Hypercapnia [Unknown]
  - Respiratory failure [Unknown]
  - Dysphonia [Not Recovered/Not Resolved]
  - Oxygen saturation increased [Unknown]
  - Muscular weakness [Recovering/Resolving]

NARRATIVE: CASE EVENT DATE: 20170111
